FAERS Safety Report 21520860 (Version 2)
Quarter: 2022Q4

REPORT INFORMATION
  Report Type: Spontaneous
  Country: US (occurrence: None)
  Receive Date: 20221028
  Receipt Date: 20221127
  Transmission Date: 20230112
  Serious: No
  Sender: FDA-Public Use
  Company Number: 2022A334489

PATIENT
  Age: 880 Month
  Sex: Male
  Weight: 106.6 kg

DRUGS (1)
  1. FASENRA [Suspect]
     Active Substance: BENRALIZUMAB
     Indication: Chronic obstructive pulmonary disease
     Route: 058
     Dates: start: 202207

REACTIONS (2)
  - Peripheral swelling [Not Recovered/Not Resolved]
  - Off label use [Unknown]

NARRATIVE: CASE EVENT DATE: 20220701
